FAERS Safety Report 20362112 (Version 1)
Quarter: 2022Q1

REPORT INFORMATION
  Report Type: Spontaneous
  Country: SE (occurrence: SE)
  Receive Date: 20220121
  Receipt Date: 20220121
  Transmission Date: 20220423
  Serious: Yes (Other)
  Sender: FDA-Public Use
  Company Number: None

PATIENT
  Age: 72 Year
  Sex: Male

DRUGS (5)
  1. LOSARTAN [Suspect]
     Active Substance: LOSARTAN
     Indication: Hypertension
     Dosage: 50 MG, QD
     Route: 048
     Dates: start: 20210817, end: 20210818
  2. NAPROXEN [Concomitant]
     Active Substance: NAPROXEN
     Indication: Product used for unknown indication
     Dosage: UNK (250 MG 1 TABLETT 2 GANGER DAGLIGEN, ARTRIT KNA)
     Route: 048
     Dates: start: 20210401
  3. ACETAMINOPHEN [Concomitant]
     Active Substance: ACETAMINOPHEN
     Indication: Product used for unknown indication
     Dosage: UNK (500 MG 1-2 TABLETTER 1-4 GANGER DAGLIGEN. MOT SMARTA)
     Route: 048
     Dates: start: 20191201
  4. OMEPRAZOLE [Concomitant]
     Active Substance: OMEPRAZOLE
     Indication: Product used for unknown indication
     Dosage: UNK (20 MG 1 KAPSEL 1 G?NG DAGLIGEN VID BEHOV PGA MAGMUNSBR?CK)
     Route: 048
     Dates: start: 20191201
  5. FELODIPINE [Concomitant]
     Active Substance: FELODIPINE
     Indication: Product used for unknown indication
     Dosage: UNK (2,5 MG 1 TABLETT DAGLIGEN)
     Route: 048
     Dates: start: 20200301

REACTIONS (3)
  - Mouth swelling [Recovered/Resolved]
  - Lip swelling [Recovered/Resolved]
  - Product substitution issue [Recovered/Resolved]

NARRATIVE: CASE EVENT DATE: 20210817
